FAERS Safety Report 8879003 (Version 3)
Quarter: 2013Q4

REPORT INFORMATION
  Report Type: Report from Study
  Country: FR (occurrence: FR)
  Receive Date: 20121026
  Receipt Date: 20131101
  Transmission Date: 20140711
  Serious: Yes (Hospitalization)
  Sender: FDA-Public Use
  Company Number: PHHY2012FR087628

PATIENT
  Age: 69 Year
  Sex: Female
  Weight: 73 kg

DRUGS (8)
  1. CERTICAN [Suspect]
     Indication: PROPHYLAXIS AGAINST TRANSPLANT REJECTION
     Dosage: 2 MG, DAILY
     Route: 048
     Dates: start: 20110806, end: 20130313
  2. NEORAL [Suspect]
     Indication: PROPHYLAXIS AGAINST TRANSPLANT REJECTION
     Dosage: UNK
     Dates: start: 20130501
  3. CELLCEPT [Concomitant]
     Indication: PROPHYLAXIS AGAINST TRANSPLANT REJECTION
     Dosage: 1 G, BID
     Route: 048
     Dates: start: 20110217
  4. CELLCEPT [Concomitant]
     Dosage: UNK
     Dates: start: 20110328
  5. KARDEGIC [Concomitant]
     Indication: THROMBOSIS PROPHYLAXIS
     Dosage: 75 MG, QD
     Route: 048
     Dates: start: 20110218
  6. SOLUPRED [Concomitant]
     Indication: PROPHYLAXIS AGAINST TRANSPLANT REJECTION
     Dosage: 5 MG, QD
     Route: 048
     Dates: start: 20110222
  7. SOLUPRED [Concomitant]
     Dosage: UNK
     Dates: start: 20120223
  8. ADVAGRAF [Concomitant]
     Indication: IMMUNOSUPPRESSION
     Dosage: UNK
     Dates: start: 20130314, end: 20130430

REACTIONS (3)
  - Secondary amyloidosis [Unknown]
  - Diarrhoea [Recovering/Resolving]
  - Escherichia urinary tract infection [Recovering/Resolving]
